FAERS Safety Report 13577739 (Version 1)
Quarter: 2017Q2

REPORT INFORMATION
  Report Type: Report from Study
  Country: CA (occurrence: CA)
  Receive Date: 20170524
  Receipt Date: 20170524
  Transmission Date: 20170830
  Serious: Yes (Other)
  Sender: FDA-Public Use
  Company Number: CA-AMGEN-CANSL2017062782

PATIENT
  Age: 46 Year
  Sex: Male
  Weight: 71.7 kg

DRUGS (2)
  1. VECTIBIX [Suspect]
     Active Substance: PANITUMUMAB
     Dosage: 458 MG, Q2WK
     Route: 042
  2. VECTIBIX [Suspect]
     Active Substance: PANITUMUMAB
     Indication: COLORECTAL CANCER
     Dosage: 468 MG, Q2WK
     Route: 042
     Dates: start: 20161021

REACTIONS (8)
  - Nausea [Recovered/Resolved]
  - Paraesthesia [Recovered/Resolved]
  - Appetite disorder [Recovered/Resolved]
  - Erythema [Recovered/Resolved]
  - Constipation [Recovered/Resolved]
  - Dry mouth [Recovered/Resolved]
  - Mucosal inflammation [Recovered/Resolved]
  - Fatigue [Recovered/Resolved]

NARRATIVE: CASE EVENT DATE: 20170331
